FAERS Safety Report 5996684-7 (Version None)
Quarter: 2008Q4

REPORT INFORMATION
  Report Type: 
  Country: None (occurrence: None)
  Receive Date: 20081212
  Receipt Date: 20081022
  Transmission Date: 20090506
  Serious: No
  Sender: FDA-Public Use
  Company Number: US-ABBOTT-08P-163-0483222-00

PATIENT
  Sex: Female
  Weight: 75.818 kg

DRUGS (4)
  1. HUMIRA [Suspect]
     Indication: RHEUMATOID ARTHRITIS
     Route: 058
     Dates: start: 20060101
  2. METHOTREXATE [Concomitant]
     Indication: ARTHRITIS
     Route: 048
     Dates: start: 20000101
  3. HYDROXYCHLOROQUINE SULFATE [Concomitant]
     Indication: ARTHRITIS
     Route: 048
     Dates: start: 20000101
  4. FOLIC ACID [Concomitant]
     Indication: DRUG USE FOR UNKNOWN INDICATION
     Route: 048
     Dates: start: 20000101

REACTIONS (3)
  - BRONCHITIS [None]
  - INJECTION SITE PAIN [None]
  - SINUSITIS [None]
